FAERS Safety Report 10879466 (Version 1)
Quarter: 2015Q1

REPORT INFORMATION
  Report Type: Report from Study
  Country: US (occurrence: US)
  Receive Date: 20150302
  Receipt Date: 20150302
  Transmission Date: 20150721
  Serious: Yes (Other)
  Sender: FDA-Public Use
  Company Number: US-MERCK-1502USA010417

PATIENT
  Age: 44 Year
  Sex: Male

DRUGS (1)
  1. KEYTRUDA [Suspect]
     Active Substance: PEMBROLIZUMAB
     Indication: MALIGNANT MELANOMA

REACTIONS (4)
  - Malignant neoplasm progression [Unknown]
  - Colitis [Unknown]
  - Diarrhoea [Unknown]
  - Malignant melanoma [None]

NARRATIVE: CASE EVENT DATE: 2013
